FAERS Safety Report 14194477 (Version 1)
Quarter: 2017Q4

REPORT INFORMATION
  Report Type: Report from Study
  Country: TW (occurrence: TW)
  Receive Date: 20171116
  Receipt Date: 20171116
  Transmission Date: 20180321
  Serious: Yes (Death, Hospitalization, Other)
  Sender: FDA-Public Use
  Company Number: TW-BRISTOL-MYERS SQUIBB COMPANY-BMS-2017-075024

PATIENT
  Age: 58 Year
  Sex: Female
  Weight: 36.4 kg

DRUGS (3)
  1. NIVOLUMAB [Suspect]
     Active Substance: NIVOLUMAB
     Indication: GASTRIC CANCER
     Dosage: 3 MG/KG, Q2WK
     Route: 042
     Dates: end: 20170916
  2. NIVOLUMAB [Suspect]
     Active Substance: NIVOLUMAB
     Indication: HEPATOCELLULAR CARCINOMA
     Dosage: 3 MG/KG, UNK
     Route: 042
     Dates: start: 20170710, end: 20170814
  3. TS-1 [Suspect]
     Active Substance: GIMERACIL\OTERACIL\TEGAFUR
     Indication: GASTRIC CANCER
     Dosage: 20 MG, BID
     Route: 048
     Dates: start: 20170717, end: 20170808

REACTIONS (11)
  - Vomiting [Recovering/Resolving]
  - Large intestine perforation [Fatal]
  - Disseminated intravascular coagulation [Fatal]
  - Haemorrhage intracranial [Fatal]
  - Disease progression [Fatal]
  - Asthenia [Unknown]
  - Off label use [Unknown]
  - Pneumonitis [Fatal]
  - Septic shock [Fatal]
  - Jaundice [Fatal]
  - Product use in unapproved indication [Unknown]

NARRATIVE: CASE EVENT DATE: 20170808
